FAERS Safety Report 15704616 (Version 2)
Quarter: 2018Q4

REPORT INFORMATION
  Report Type: Spontaneous
  Country: US (occurrence: US)
  Receive Date: 20181210
  Receipt Date: 20181214
  Transmission Date: 20190205
  Serious: No
  Sender: FDA-Public Use
  Company Number: US-PFIZER INC-2018503915

PATIENT
  Sex: Male

DRUGS (1)
  1. BICILLIN L-A [Suspect]
     Active Substance: PENICILLIN G BENZATHINE
     Indication: SYPHILIS
     Dosage: UNK

REACTIONS (2)
  - Injection site pain [Unknown]
  - Rash [Unknown]
